FAERS Safety Report 5736689-4 (Version None)
Quarter: 2008Q2

REPORT INFORMATION
  Report Type: 
  Country: None (occurrence: None)
  Receive Date: 20080513
  Receipt Date: 20080502
  Transmission Date: 20081010
  Serious: Yes (Hospitalization)
  Sender: FDA-Public Use
  Company Number: JP-PFIZER INC-2008038324

PATIENT
  Sex: Male
  Weight: 59 kg

DRUGS (7)
  1. SERTRALINE [Suspect]
     Indication: DEPRESSION
     Route: 048
     Dates: start: 20071211, end: 20080130
  2. SERTRALINE [Suspect]
     Indication: HYPOCHONDRIASIS
  3. DEPAS [Concomitant]
     Route: 048
  4. SOLANAX [Concomitant]
     Route: 048
  5. SEROQUEL [Concomitant]
     Route: 048
     Dates: start: 20080108, end: 20080126
  6. ANAFRANIL [Concomitant]
     Route: 048
     Dates: start: 20080126, end: 20080128
  7. ANAFRANIL [Concomitant]
     Route: 042
     Dates: start: 20080126, end: 20080128

REACTIONS (1)
  - NEUROLEPTIC MALIGNANT SYNDROME [None]
